FAERS Safety Report 19095924 (Version 2)
Quarter: 2021Q2

REPORT INFORMATION
  Report Type: Report from Study
  Country: US (occurrence: US)
  Receive Date: 20210406
  Receipt Date: 20210528
  Transmission Date: 20210717
  Serious: Yes (Other)
  Sender: FDA-Public Use
  Company Number: US-009507513-1801USA010415

PATIENT
  Age: 79 Year
  Sex: Female

DRUGS (18)
  1. PEMBROLIZUMAB. [Suspect]
     Active Substance: PEMBROLIZUMAB
     Indication: COLON CANCER RECURRENT
     Dosage: 200 MILLIGRAM, EVERY THREE WEEKS (Q3W)
     Route: 042
     Dates: start: 20171229
  2. WARFARIN [Concomitant]
     Active Substance: WARFARIN
     Indication: THROMBOSIS
     Dosage: THE PATIENT WAS ON TOO HIGH OF A DOSE (UNSPECIFIED DOSE)
  3. LEVOTHYROXINE SODIUM. [Concomitant]
     Active Substance: LEVOTHYROXINE SODIUM
     Indication: GOITRE
     Dosage: 50 MG, QD, IN THE THE EVENING, THYROID PILL
     Route: 048
  4. FOLIC ACID. [Concomitant]
     Active Substance: FOLIC ACID
     Dosage: 2 TABLETS A DAY
     Route: 048
  5. WARFARIN [Concomitant]
     Active Substance: WARFARIN
     Indication: COAGULOPATHY
     Dosage: SUNDAY A WHOLE PILL
  6. ANASTROZOLE. [Concomitant]
     Active Substance: ANASTROZOLE
     Indication: BREAST CANCER
     Dosage: 1 MG, ONCE A DAY, PILL, DID NOT TAKE IT FOR A COUPLE OF WEEKS AS PHARMACY WAS OUT OF MEDICATION, DAT
     Route: 048
  7. LORTAB [Concomitant]
     Active Substance: ACETAMINOPHEN\HYDROCODONE BITARTRATE
     Indication: PAIN
     Dosage: THREE HALF PILLS FOR A TOTAL DOSE OF ONE AND ONE HALF PILLS
  8. INFLUENZA VACCINE INACT [Concomitant]
     Active Substance: INFLUENZA VIRUS VACCINE
     Indication: PROPHYLAXIS
     Dosage: UNK
     Dates: start: 201809
  9. INFLUENZA VACCINE INACT [Concomitant]
     Active Substance: INFLUENZA VIRUS VACCINE
     Dosage: UNK
     Dates: start: 202009
  10. FOLIC ACID. [Concomitant]
     Active Substance: FOLIC ACID
     Dosage: 400MCG, 2 TABLETS A DAY
     Route: 048
  11. VITAMIN D NOS [Concomitant]
     Active Substance: VITAMIN D NOS
     Indication: ROUTINE HEALTH MAINTENANCE
     Dosage: 2000 MG, ONCE A DAY
  12. PEMBROLIZUMAB. [Suspect]
     Active Substance: PEMBROLIZUMAB
     Indication: NEOPLASM MALIGNANT
     Dosage: 200 MILLIGRAM, EVERY THREE WEEKS (Q3W)
     Route: 042
     Dates: start: 20180122
  13. PEMBROLIZUMAB. [Suspect]
     Active Substance: PEMBROLIZUMAB
     Dosage: 200 MILLIGRAM, EVERY 6 WEEKS
     Route: 042
     Dates: start: 20200715
  14. PRINIVIL [Concomitant]
     Active Substance: LISINOPRIL
     Indication: HYPERTENSION
     Dosage: 20?25 MG, ONCE A DAY
     Route: 048
  15. WARFARIN [Concomitant]
     Active Substance: WARFARIN
     Indication: HAEMORRHAGE
     Dosage: 2.5 MG (1/2 TABLET), DAILY IN THE EVENING
     Route: 048
  16. LEVOTHYROXINE SODIUM. [Concomitant]
     Active Substance: LEVOTHYROXINE SODIUM
     Indication: THYROID DISORDER
     Dosage: 75 MG, ONCE A DAY
     Route: 048
  17. VITAMIN D NOS [Concomitant]
     Active Substance: VITAMIN D NOS
     Indication: ROUTINE HEALTH MAINTENANCE
     Dosage: UNK, ONCE DAILY
  18. PEMBROLIZUMAB. [Suspect]
     Active Substance: PEMBROLIZUMAB
     Indication: MICROSATELLITE INSTABILITY CANCER
     Dosage: 200 MILLIGRAM, EVERY THREE WEEKS (Q3W)
     Route: 042
     Dates: start: 20180212, end: 20200603

REACTIONS (44)
  - Thyroid hormones decreased [Unknown]
  - Amnesia [Unknown]
  - Asthenia [Recovered/Resolved]
  - Product use issue [Unknown]
  - Near death experience [Unknown]
  - Anticoagulation drug level abnormal [Not Recovered/Not Resolved]
  - Energy increased [Unknown]
  - Vein disorder [Unknown]
  - Decreased appetite [Recovering/Resolving]
  - Product use in unapproved indication [Unknown]
  - Neoplasm malignant [Unknown]
  - Ill-defined disorder [Recovered/Resolved]
  - Memory impairment [Unknown]
  - Diarrhoea [Recovered/Resolved]
  - Blood viscosity increased [Unknown]
  - Eating disorder [Recovering/Resolving]
  - Skin haemorrhage [Recovered/Resolved]
  - Rhinorrhoea [Recovered/Resolved]
  - Thyroid hormones decreased [Recovered/Resolved]
  - Vitamin D decreased [Unknown]
  - Insomnia [Unknown]
  - Gait disturbance [Unknown]
  - Abdominal pain lower [Recovered/Resolved]
  - Pain [Recovered/Resolved]
  - Asthenia [Recovered/Resolved]
  - Renal haemorrhage [Recovered/Resolved]
  - Dysphonia [Unknown]
  - Surgery [Unknown]
  - Thyroid hormones increased [Unknown]
  - Blood pressure increased [Unknown]
  - Pain [Unknown]
  - Fatigue [Unknown]
  - Anticoagulation drug level increased [Recovering/Resolving]
  - Anticoagulation drug level abnormal [Recovered/Resolved]
  - Nasopharyngitis [Recovered/Resolved]
  - Nasopharyngitis [Not Recovered/Not Resolved]
  - Skin discolouration [Unknown]
  - Weight increased [Recovered/Resolved]
  - Peripheral swelling [Unknown]
  - Arthralgia [Recovered/Resolved]
  - Inappropriate schedule of product administration [Unknown]
  - Depression [Unknown]
  - Large intestine polyp [Unknown]
  - Rash macular [Unknown]

NARRATIVE: CASE EVENT DATE: 201712
